FAERS Safety Report 9548613 (Version 3)
Quarter: 2014Q1

REPORT INFORMATION
  Report Type: Spontaneous
  Country: AR (occurrence: AR)
  Receive Date: 20130924
  Receipt Date: 20140211
  Transmission Date: 20141002
  Serious: Yes (Hospitalization, Other)
  Sender: FDA-Public Use
  Company Number: AR-PFIZER INC-2013270942

PATIENT
  Age: 46 Year
  Sex: Female

DRUGS (4)
  1. SUTENT [Suspect]
     Indication: METASTATIC RENAL CELL CARCINOMA
     Dosage: 50 MG, CYCLIC  DAILY (4WEEKS ON AND 2 WEEKS OFF)
     Dates: start: 20130626, end: 201309
  2. ENALAPRIL [Concomitant]
     Indication: HYPERTENSION
     Dosage: 5 MG, 2X/DAY
  3. DBI [Concomitant]
     Indication: TYPE 2 DIABETES MELLITUS
     Dosage: 4 MG, 1X/DAY
  4. GLIMEPIRIDA [Concomitant]
     Indication: TYPE 2 DIABETES MELLITUS
     Dosage: UNK

REACTIONS (4)
  - Pneumonia [Recovered/Resolved]
  - Gastric ulcer [Recovering/Resolving]
  - Gastric ulcer haemorrhage [Recovered/Resolved]
  - Gastric ulcer perforation [Recovered/Resolved]
